FAERS Safety Report 19480841 (Version 1)
Quarter: 2021Q2

REPORT INFORMATION
  Report Type: Spontaneous
  Country: US (occurrence: US)
  Receive Date: 20210630
  Receipt Date: 20210630
  Transmission Date: 20210717
  Serious: No
  Sender: FDA-Public Use
  Company Number: None

PATIENT
  Age: 56 Year
  Sex: Male
  Weight: 60 kg

DRUGS (1)
  1. TIZANIDINE (TIZANIDINE HCL 4MG TAB) [Suspect]
     Active Substance: TIZANIDINE HYDROCHLORIDE
     Indication: MUSCLE SPASMS
     Dosage: OTHER
     Route: 048
     Dates: start: 20191024, end: 20210127

REACTIONS (1)
  - Hypotension [None]

NARRATIVE: CASE EVENT DATE: 20210126
